FAERS Safety Report 10597533 (Version 1)
Quarter: 2014Q4

REPORT INFORMATION
  Report Type: Spontaneous
  Country: US (occurrence: None)
  Receive Date: 20141119
  Receipt Date: 20141119
  Transmission Date: 20150529
  Serious: Yes (Other)
  Sender: FDA-Public Use
  Company Number: IMP_08154_214

PATIENT
  Age: 68 Year
  Sex: Male

DRUGS (4)
  1. DONEPEZIL [Concomitant]
     Active Substance: DONEPEZIL
  2. LEVODOPA/CARBIDOPA [Suspect]
     Active Substance: CARBIDOPA\LEVODOPA
     Indication: PARKINSON^S DISEASE
  3. MIDODRINE [Concomitant]
     Active Substance: MIDODRINE
  4. QUETIAPINE [Concomitant]
     Active Substance: QUETIAPINE

REACTIONS (7)
  - Memory impairment [None]
  - Delusion [None]
  - Pneumonia aspiration [None]
  - Cognitive disorder [None]
  - Speech disorder [None]
  - Visual impairment [None]
  - Delusion of replacement [None]
